FAERS Safety Report 20140718 (Version 1)
Quarter: 2021Q4

REPORT INFORMATION
  Report Type: Spontaneous
  Country: MX (occurrence: MX)
  Receive Date: 20211202
  Receipt Date: 20211202
  Transmission Date: 20220303
  Serious: Yes (Other)
  Sender: FDA-Public Use
  Company Number: MX-NOVARTISPH-NVSC2020MX095783

PATIENT
  Age: 91 Year
  Sex: Male
  Weight: 59 kg

DRUGS (1)
  1. TIMOLOL MALEATE\TRAVOPROST [Suspect]
     Active Substance: TIMOLOL MALEATE\TRAVOPROST
     Indication: Glaucoma
     Dosage: 2 GTT, QD (2.5 ML)
     Route: 047
     Dates: start: 201912

REACTIONS (4)
  - Cataract [Unknown]
  - Mental impairment [Unknown]
  - Intraocular pressure test abnormal [Unknown]
  - Product use issue [Unknown]

NARRATIVE: CASE EVENT DATE: 20200124
